FAERS Safety Report 5220980-4 (Version None)
Quarter: 2007Q1

REPORT INFORMATION
  Report Type: 
  Country: None (occurrence: None)
  Receive Date: 20070124
  Receipt Date: 20061101
  Transmission Date: 20070707
  Serious: Yes (Hospitalization)
  Sender: FDA-Public Use
  Company Number: DL2006474

PATIENT
  Age: 33 Year
  Sex: Female

DRUGS (2)
  1. MIFEPRISTONE TABLETS, 200 MG (DANCO LABS) [Suspect]
     Indication: ABORTION INDUCED
     Dosage: 200 MG ORAL
     Route: 048
     Dates: start: 20060912
  2. MISOPROSTOL [Suspect]
     Dosage: 800 MCG BUCCAL
     Route: 002
     Dates: start: 20060913

REACTIONS (3)
  - ABORTION INCOMPLETE [None]
  - ANAEMIA [None]
  - MENORRHAGIA [None]
